FAERS Safety Report 8401075-5 (Version None)
Quarter: 2012Q2

REPORT INFORMATION
  Report Type: 
  Country: None (occurrence: None)
  Receive Date: 20120525
  Receipt Date: 20120510
  Transmission Date: 20120825
  Serious: Yes (Hospitalization)
  Sender: FDA-Public Use
  Company Number: 2012P1025709

PATIENT
  Age: 62 Year
  Sex: Female
  Weight: 84.8226 kg

DRUGS (8)
  1. BEPRIDIL [Concomitant]
  2. MARIAL [Concomitant]
  3. CEFTAZIDIME [Suspect]
     Dosage: IV
     Route: 042
     Dates: start: 20120401, end: 20120412
  4. ENALAPRIL MALEATE [Concomitant]
  5. LIPIDEX [Concomitant]
  6. NORMATIN [Concomitant]
  7. HYDROCHLORIDE [Concomitant]
  8. SPIRONOLACTONE [Concomitant]

REACTIONS (3)
  - ENTEROBACTER INFECTION [None]
  - WOUND INFECTION [None]
  - MEDIASTINITIS [None]
